FAERS Safety Report 6213690-8 (Version None)
Quarter: 2009Q2

REPORT INFORMATION
  Report Type: 
  Country: None (occurrence: None)
  Receive Date: 20090603
  Receipt Date: 20090522
  Transmission Date: 20091009
  Serious: Yes (Other)
  Sender: FDA-Public Use
  Company Number: PHHY2009JP20323

PATIENT
  Sex: Female

DRUGS (7)
  1. DIOVAN T30230+TAB+HY [Suspect]
     Dosage: 80 MG, BID
     Route: 048
     Dates: start: 20071203, end: 20080617
  2. NORVASC [Concomitant]
     Indication: HYPERTENSION
     Dosage: 5 MG
     Route: 048
     Dates: start: 20070514
  3. CARDENALIN [Concomitant]
     Indication: HYPERTENSION
     Dosage: 2 MG
     Route: 048
     Dates: start: 20070514
  4. BLOPRESS [Concomitant]
     Indication: HYPERTENSION
     Dosage: 12 MG
     Route: 048
     Dates: start: 20070514, end: 20071202
  5. ARGAMATE [Concomitant]
     Dosage: 50G
     Route: 048
     Dates: start: 20070514
  6. KREMEZIN [Concomitant]
     Dosage: 6 G
     Route: 048
     Dates: start: 20070514
  7. LASIX [Concomitant]
     Dosage: 40 MG
     Route: 048
     Dates: start: 20070514

REACTIONS (1)
  - DIALYSIS [None]
